FAERS Safety Report 23858264 (Version 3)
Quarter: 2025Q1

REPORT INFORMATION
  Report Type: Spontaneous
  Country: US (occurrence: US)
  Receive Date: 20240515
  Receipt Date: 20250113
  Transmission Date: 20250408
  Serious: Yes (Hospitalization, Other)
  Sender: PFIZER
  Company Number: US-PFIZER INC-PV202400062732

PATIENT
  Age: 86 Year
  Sex: Male
  Weight: 66.213 kg

DRUGS (3)
  1. VYNDAMAX [Suspect]
     Active Substance: TAFAMIDIS
     Indication: Cardiac amyloidosis
     Dosage: TAKE 1 CAPSULE ONE TIME EACH DAY
     Route: 048
  2. VYNDAMAX [Suspect]
     Active Substance: TAFAMIDIS
     Indication: Cardiac failure congestive
     Dosage: TAKE 1 CAPSULE ONE TIME EACH DAY
     Route: 048
     Dates: start: 20240515
  3. VYNDAMAX [Suspect]
     Active Substance: TAFAMIDIS
     Indication: Cardiac failure

REACTIONS (6)
  - Pneumonia aspiration [Not Recovered/Not Resolved]
  - Pancytopenia [Unknown]
  - Hypogammaglobulinaemia [Unknown]
  - Weight decreased [Unknown]
  - Malaise [Unknown]
  - Asthenia [Unknown]

NARRATIVE: CASE EVENT DATE: 20240101
